FAERS Safety Report 22277305 (Version 3)
Quarter: 2023Q2

REPORT INFORMATION
  Report Type: Spontaneous
  Country: FR (occurrence: FR)
  Receive Date: 20230503
  Receipt Date: 20230517
  Transmission Date: 20230721
  Serious: Yes (Hospitalization, Other)
  Sender: FDA-Public Use
  Company Number: None

PATIENT
  Age: 72 Year
  Sex: Female
  Weight: 72 kg

DRUGS (5)
  1. CAPECITABINE [Suspect]
     Active Substance: CAPECITABINE
     Indication: Breast cancer
     Dosage: 4G/J    5JOURS/7;?4G/D   5 DAYS/7
     Route: 048
     Dates: start: 20230213, end: 20230330
  2. RILMENIDINE PHOSPHATE [Concomitant]
     Active Substance: RILMENIDINE PHOSPHATE
     Dosage: DAILY DOSE: 1 MILLIGRAM
     Route: 048
     Dates: end: 20230330
  3. CELIPROLOL [Concomitant]
     Active Substance: CELIPROLOL
     Dosage: DAILY DOSE: 400 MILLIGRAM
     Route: 048
     Dates: end: 20230330
  4. TAHOR [Concomitant]
     Active Substance: ATORVASTATIN CALCIUM
     Route: 048
     Dates: end: 20230330
  5. VALSARTAN [Concomitant]
     Active Substance: VALSARTAN
     Dosage: DAILY DOSE: 320 MILLIGRAM
     Route: 048
     Dates: end: 20230330

REACTIONS (9)
  - Acute kidney injury [Recovered/Resolved]
  - Diarrhoea [Recovering/Resolving]
  - Hypokalaemia [Unknown]
  - Hypotension [Unknown]
  - Acidosis hyperchloraemic [Recovered/Resolved]
  - Dehydration [Recovering/Resolving]
  - Arrhythmia [Unknown]
  - Atrial fibrillation [Unknown]
  - Tachyarrhythmia [Unknown]

NARRATIVE: CASE EVENT DATE: 20230330
